FAERS Safety Report 12859352 (Version 1)
Quarter: 2016Q4

REPORT INFORMATION
  Report Type: Spontaneous
  Country: US (occurrence: US)
  Receive Date: 20161018
  Receipt Date: 20161018
  Transmission Date: 20170207
  Serious: Yes (Hospitalization)
  Sender: FDA-Public Use
  Company Number: US-ALLERGAN-1000086817

PATIENT
  Sex: Female

DRUGS (1)
  1. NAMZARIC [Suspect]
     Active Substance: DONEPEZIL HYDROCHLORIDE\MEMANTINE HYDROCHLORIDE
     Dosage: UNK
     Route: 048

REACTIONS (1)
  - Bradycardia [Unknown]

NARRATIVE: CASE EVENT DATE: 201608
